FAERS Safety Report 17019101 (Version 1)
Quarter: 2019Q4

REPORT INFORMATION
  Report Type: Report from Study
  Country: None (occurrence: US)
  Receive Date: 20191112
  Receipt Date: 20191112
  Transmission Date: 20200122
  Serious: Yes (Other)
  Sender: FDA-Public Use
  Company Number: US-ABBVIE-19K-163-2847039-00

PATIENT
  Age: 69 Year
  Sex: Male
  Weight: 104.42 kg

DRUGS (2)
  1. VENCLEXTA [Suspect]
     Active Substance: VENETOCLAX
     Indication: PLASMA CELL MYELOMA
     Route: 048
     Dates: start: 20190606, end: 201909
  2. VENCLEXTA [Suspect]
     Active Substance: VENETOCLAX
     Indication: MYELODYSPLASTIC SYNDROME

REACTIONS (2)
  - Stem cell transplant [Unknown]
  - Off label use [Unknown]

NARRATIVE: CASE EVENT DATE: 20190606
